FAERS Safety Report 4339763-2 (Version None)
Quarter: 2004Q2

REPORT INFORMATION
  Report Type: 
  Country: None (occurrence: None)
  Receive Date: 20040415
  Receipt Date: 20040415
  Transmission Date: 20050107
  Serious: Yes (Hospitalization)
  Sender: FDA-Public Use
  Company Number: None

PATIENT
  Sex: Male
  Weight: 98.8842 kg

DRUGS (10)
  1. GATIFLOXACIN [Suspect]
     Indication: URINARY TRACT INFECTION
     Dosage: 400 MG DAILY ORAL
     Route: 048
     Dates: start: 20040324, end: 20040330
  2. TRAZODONE HCL [Concomitant]
  3. FOLIC ACID [Concomitant]
  4. GLYBURIDE [Concomitant]
  5. PROPRANOLOL [Concomitant]
  6. THIAMINE [Concomitant]
  7. OMEPRAZOLE [Concomitant]
  8. LACTULOSE [Concomitant]
  9. MULTI-VITAMIN [Concomitant]
  10. TMP-SMX DS [Concomitant]

REACTIONS (3)
  - BLOOD GLUCOSE INCREASED [None]
  - POLYDIPSIA [None]
  - POLYURIA [None]
